FAERS Safety Report 9454348 (Version 2)
Quarter: 2013Q4

REPORT INFORMATION
  Report Type: Spontaneous
  Country: GB (occurrence: GB)
  Receive Date: 20130812
  Receipt Date: 20131015
  Transmission Date: 20140711
  Serious: Yes (Other)
  Sender: FDA-Public Use
  Company Number: GB-AMGEN-GBRSP2013056387

PATIENT
  Age: 28 Year
  Sex: Female
  Weight: 51 kg

DRUGS (3)
  1. ENBREL [Suspect]
     Indication: PSORIATIC ARTHROPATHY
     Dosage: 50 MG, WEEKLY
     Route: 058
     Dates: start: 20080320
  2. METHOTREXATE [Concomitant]
     Indication: PSORIATIC ARTHROPATHY
     Dosage: 15 MG, WEEKLY
     Route: 048
     Dates: start: 201012
  3. FOLIC ACID [Concomitant]
     Dosage: 5 G, 6 DAYS A WEEK
     Route: 048
     Dates: start: 201012

REACTIONS (2)
  - Cervical dysplasia [Unknown]
  - Papilloma viral infection [Unknown]
